FAERS Safety Report 9707969 (Version 1)
Quarter: 2013Q4

REPORT INFORMATION
  Report Type: Spontaneous
  Country: IT (occurrence: IT)
  Receive Date: 20131125
  Receipt Date: 20131125
  Transmission Date: 20140711
  Serious: Yes (Hospitalization)
  Sender: FDA-Public Use
  Company Number: IT-SA-2013SA118692

PATIENT
  Age: 82 Year
  Sex: Male

DRUGS (7)
  1. LASIX [Suspect]
     Indication: PULMONARY HYPERTENSION
     Route: 048
     Dates: start: 20130814, end: 20130816
  2. LOSARTAN [Concomitant]
     Route: 048
  3. TORVAST [Concomitant]
     Route: 048
  4. BRILIQUE [Concomitant]
     Route: 048
  5. CORDARONE [Concomitant]
     Dosage: STRENGTH: 200 MG
     Route: 048
  6. CARDIOASPIRIN [Concomitant]
     Dosage: STRENGTH: 100 MG
     Route: 048
  7. PANTORC [Concomitant]

REACTIONS (3)
  - Dizziness [Unknown]
  - Craniocerebral injury [Unknown]
  - Hypokalaemia [Unknown]
